FAERS Safety Report 8170602-8 (Version None)
Quarter: 2012Q1

REPORT INFORMATION
  Report Type: 
  Country: None (occurrence: None)
  Receive Date: 20120228
  Receipt Date: 20120214
  Transmission Date: 20120608
  Serious: Yes (Death, Other)
  Sender: FDA-Public Use
  Company Number: JP-AMGEN-JPNSP2011034885

PATIENT
  Age: 74 Year
  Sex: Male
  Weight: 64 kg

DRUGS (32)
  1. ROMIPLOSTIM - KHK [Suspect]
     Dosage: 6.3 MG/KG, QD
     Route: 058
     Dates: start: 20110810, end: 20110810
  2. ROMIPLOSTIM - KHK [Suspect]
     Dosage: 6.3 MG/KG, QD
     Route: 058
     Dates: start: 20110921, end: 20110921
  3. ROMIPLOSTIM - KHK [Suspect]
     Dosage: 6.3 MG/KG, QD
     Route: 058
     Dates: start: 20111019, end: 20111019
  4. ROMIPLOSTIM - KHK [Suspect]
     Dosage: 6.3 MG/KG, QD
     Route: 058
     Dates: start: 20111214, end: 20111214
  5. ROMIPLOSTIM - KHK [Suspect]
     Dosage: 6.3 MG/KG, QD
     Route: 058
     Dates: start: 20110622, end: 20110622
  6. NORVASC [Concomitant]
     Indication: HYPERTENSION
     Dosage: UNK
     Route: 048
  7. TEGRETOL [Concomitant]
     Indication: PROPHYLAXIS
     Dosage: UNK
     Route: 048
  8. ROMIPLOSTIM - KHK [Suspect]
     Indication: IDIOPATHIC THROMBOCYTOPENIC PURPURA
     Dosage: 6.3 MG/KG, QD
     Route: 058
     Dates: start: 20110615, end: 20110615
  9. ROMIPLOSTIM - KHK [Suspect]
     Dosage: 6.3 MG/KG, QD
     Route: 058
     Dates: start: 20110629, end: 20110629
  10. ROMIPLOSTIM - KHK [Suspect]
     Dosage: 6.3 MG/KG, QD
     Route: 058
     Dates: start: 20110727, end: 20110727
  11. ROMIPLOSTIM - KHK [Suspect]
     Dosage: 6.3 MG/KG, QD
     Route: 058
     Dates: start: 20110817, end: 20110817
  12. ROMIPLOSTIM - KHK [Suspect]
     Dosage: 6.3 MG/KG, QD
     Route: 058
     Dates: start: 20111026, end: 20111026
  13. ROMIPLOSTIM - KHK [Suspect]
     Dosage: 6.3 MG/KG, QD
     Route: 058
     Dates: start: 20111130, end: 20111130
  14. ROMIPLOSTIM - KHK [Suspect]
     Dosage: 6.3 MG/KG, QD
     Route: 058
     Dates: start: 20110914, end: 20110914
  15. ROMIPLOSTIM - KHK [Suspect]
     Dosage: 6.3 MG/KG, QD
     Route: 058
     Dates: start: 20111012, end: 20111012
  16. ROMIPLOSTIM - KHK [Suspect]
     Dosage: 6.3 MG/KG, QD
     Route: 058
     Dates: start: 20111109, end: 20111109
  17. ROMIPLOSTIM - KHK [Suspect]
     Dosage: 6.3 MG/KG, QD
     Route: 058
     Dates: start: 20111124, end: 20111124
  18. ROMIPLOSTIM - KHK [Suspect]
     Dosage: 6.3 MG/KG, QD
     Route: 058
     Dates: start: 20111207, end: 20111207
  19. LIPITOR [Concomitant]
     Indication: HYPERLIPIDAEMIA
     Dosage: UNK
     Route: 048
  20. ALLOPURINOL [Concomitant]
     Indication: HYPERURICAEMIA
     Dosage: UNK
     Route: 048
  21. ROMIPLOSTIM - KHK [Suspect]
     Dosage: 6.3 MG/KG, QD
     Route: 058
     Dates: start: 20110706, end: 20110706
  22. ROMIPLOSTIM - KHK [Suspect]
     Dosage: 6.3 MG/KG, QD
     Route: 058
     Dates: start: 20110831, end: 20110831
  23. ROMIPLOSTIM - KHK [Suspect]
     Dosage: 6.3 MG/KG, QD
     Route: 058
     Dates: start: 20110928, end: 20110928
  24. ROMIPLOSTIM - KHK [Suspect]
     Dosage: 6.3 MG/KG, QD
     Route: 058
     Dates: start: 20111102, end: 20111102
  25. ROMIPLOSTIM - KHK [Suspect]
     Dosage: 6.3 MG/KG, QD
     Route: 058
     Dates: start: 20110907, end: 20110907
  26. DEPAS [Concomitant]
     Indication: INSOMNIA
     Dosage: UNK
     Route: 048
  27. ROMIPLOSTIM - KHK [Suspect]
     Dosage: 6.3 MG/KG, QD
     Route: 058
     Dates: start: 20110803, end: 20110803
  28. ROMIPLOSTIM - KHK [Suspect]
     Dosage: 6.3 MG/KG, QD
     Route: 058
     Dates: start: 20111005, end: 20111005
  29. ROMIPLOSTIM - KHK [Suspect]
     Dosage: 6.3 MG/KG, QD
     Route: 058
     Dates: start: 20111116, end: 20111116
  30. ROMIPLOSTIM - KHK [Suspect]
     Dosage: 6.3 MG/KG, QD
     Route: 058
     Dates: start: 20110713, end: 20110713
  31. ROMIPLOSTIM - KHK [Suspect]
     Dosage: 6.3 MG/KG, QD
     Route: 058
     Dates: start: 20110720, end: 20110720
  32. ROMIPLOSTIM - KHK [Suspect]
     Dosage: 6.3 MG/KG, QD
     Route: 058
     Dates: start: 20110824, end: 20110824

REACTIONS (3)
  - DEATH [None]
  - NASAL VESTIBULITIS [None]
  - DIZZINESS POSTURAL [None]
